FAERS Safety Report 25200639 (Version 1)
Quarter: 2025Q2

REPORT INFORMATION
  Report Type: Spontaneous
  Country: CN (occurrence: CN)
  Receive Date: 20250415
  Receipt Date: 20250415
  Transmission Date: 20250717
  Serious: Yes (Other)
  Sender: BAYER
  Company Number: CN-BAYER-2025A049807

PATIENT
  Age: 29 Year
  Sex: Female
  Weight: 65 kg

DRUGS (1)
  1. YASMIN [Suspect]
     Active Substance: DROSPIRENONE\ETHINYL ESTRADIOL
     Indication: Contraception
     Dosage: 1 DF, QD
     Route: 048
     Dates: start: 20250327, end: 20250331

REACTIONS (4)
  - Abdominal pain [Recovered/Resolved]
  - Vertigo positional [Recovered/Resolved]
  - Nausea [Recovered/Resolved]
  - Tremor [Recovered/Resolved]

NARRATIVE: CASE EVENT DATE: 20250329
